FAERS Safety Report 7400813-8 (Version None)
Quarter: 2011Q2

REPORT INFORMATION
  Report Type: 
  Country: None (occurrence: None)
  Receive Date: 20110407
  Receipt Date: 20110308
  Transmission Date: 20111010
  Serious: Yes (Hospitalization)
  Sender: FDA-Public Use
  Company Number: US-BAYER-201042042NA

PATIENT
  Sex: Female
  Weight: 54.422 kg

DRUGS (3)
  1. ELAVIL [Concomitant]
     Dosage: UNK
     Dates: start: 20090101
  2. YAZ [Suspect]
     Indication: ORAL CONTRACEPTION
     Dosage: UNK
     Route: 048
     Dates: start: 20070101, end: 20090101
  3. UNKNOWN [Concomitant]
     Indication: MIGRAINE

REACTIONS (2)
  - TRANSIENT ISCHAEMIC ATTACK [None]
  - INJURY [None]
